FAERS Safety Report 8008038-2 (Version None)
Quarter: 2011Q4

REPORT INFORMATION
  Report Type: 
  Country: None (occurrence: None)
  Receive Date: 20111227
  Receipt Date: 20111220
  Transmission Date: 20120403
  Serious: Yes (Life-Threatening, Hospitalization, Other)
  Sender: FDA-Public Use
  Company Number: PHFR2010GB00529

PATIENT
  Sex: Male

DRUGS (6)
  1. LOPERAMIDE [Concomitant]
     Dosage: 4 MG
     Route: 048
     Dates: start: 20100817
  2. CLOZARIL [Suspect]
     Indication: SCHIZOPHRENIA
     Dosage: 150 MG, 50 MG AM, 100 MG PM
     Route: 048
     Dates: start: 19990722
  3. CLOZARIL [Suspect]
     Route: 048
     Dates: start: 20010701
  4. IBUPROFEN [Concomitant]
     Indication: MUSCULOSKELETAL PAIN
     Route: 048
  5. ANTIBIOTICS [Concomitant]
     Indication: PYREXIA
     Route: 042
  6. NEUPOGEN [Concomitant]

REACTIONS (15)
  - LYMPHOCYTE COUNT DECREASED [None]
  - PLATELET COUNT DECREASED [None]
  - PYREXIA [None]
  - WHITE BLOOD CELL COUNT INCREASED [None]
  - CIRCULATORY COLLAPSE [None]
  - NEUTROPHIL COUNT DECREASED [None]
  - DIZZINESS [None]
  - NEUTROPHIL COUNT INCREASED [None]
  - MEAN CELL VOLUME DECREASED [None]
  - LOSS OF CONSCIOUSNESS [None]
  - MEAN CELL HAEMOGLOBIN DECREASED [None]
  - HAEMOGLOBIN DECREASED [None]
  - DIFFERENTIAL WHITE BLOOD CELL COUNT ABNORMAL [None]
  - NON-HODGKIN'S LYMPHOMA [None]
  - WHITE BLOOD CELL COUNT DECREASED [None]
